FAERS Safety Report 4653197-2 (Version None)
Quarter: 2005Q2

REPORT INFORMATION
  Report Type: 
  Country: None (occurrence: None)
  Receive Date: 20050503
  Receipt Date: 20050503
  Transmission Date: 20051028
  Serious: Yes (Death)
  Sender: FDA-Public Use
  Company Number: None

PATIENT
  Age: 71 Year
  Sex: Female

DRUGS (2)
  1. PEG-INTRON INJ. 135 MCG [Suspect]
     Indication: HEPATITIS C
     Dosage: 135 MCG
     Dates: start: 20050422
  2. NUMEROUS OTHER MEDICATIONS, PRESCRIPTION AND OTC [Concomitant]

REACTIONS (1)
  - CIRCULATORY COLLAPSE [None]
